FAERS Safety Report 10343738 (Version 1)
Quarter: 2014Q3

REPORT INFORMATION
  Report Type: Report from Study
  Country: US (occurrence: US)
  Receive Date: 20140725
  Receipt Date: 20140725
  Transmission Date: 20150326
  Serious: Yes (Death)
  Sender: FDA-Public Use
  Company Number: US-ABBVIE-14P-163-1263464-00

PATIENT
  Age: 44 Year
  Sex: Male
  Weight: 108.96 kg

DRUGS (4)
  1. DEPAKOTE [Suspect]
     Active Substance: DIVALPROEX SODIUM
     Indication: SUICIDAL IDEATION
  2. DEPAKOTE [Suspect]
     Active Substance: DIVALPROEX SODIUM
     Indication: BIPOLAR DISORDER
  3. DEPAKOTE [Suspect]
     Active Substance: DIVALPROEX SODIUM
     Indication: BIPOLAR I DISORDER
     Dates: start: 201403, end: 20140712
  4. TOPROL XL [Concomitant]
     Active Substance: METOPROLOL SUCCINATE
     Indication: HYPERTENSION

REACTIONS (7)
  - Chest pain [Fatal]
  - Nervousness [Recovered/Resolved]
  - Blood urine present [Fatal]
  - Suicidal ideation [Fatal]
  - Violence-related symptom [Recovered/Resolved]
  - Hypoaesthesia [Fatal]
  - Mouth haemorrhage [Fatal]

NARRATIVE: CASE EVENT DATE: 201403
